FAERS Safety Report 10913584 (Version 2)
Quarter: 2015Q1

REPORT INFORMATION
  Report Type: Spontaneous
  Country: JP (occurrence: JP)
  Receive Date: 20150313
  Receipt Date: 20150331
  Transmission Date: 20150721
  Serious: Yes (Hospitalization)
  Sender: FDA-Public Use
  Company Number: JP-009507513-1503JPN003931

PATIENT
  Age: 72 Year
  Sex: Male

DRUGS (3)
  1. SIMEPREVIR SODIUM [Suspect]
     Active Substance: SIMEPREVIR SODIUM
     Indication: CHRONIC HEPATITIS C
     Dosage: 100 MG, QD
     Route: 048
     Dates: start: 201412
  2. PEGINTRON [Suspect]
     Active Substance: PEGINTERFERON ALFA-2B
     Indication: CHRONIC HEPATITIS C
     Dosage: 100 MICROGRAM PER KILOGRAM, QW
     Route: 058
     Dates: start: 201412
  3. REBETOL [Suspect]
     Active Substance: RIBAVIRIN
     Indication: CHRONIC HEPATITIS C
     Dosage: 600 MG, QD, 600 MG A DAY (TWICE SPLIT DOSAGE)
     Route: 048
     Dates: start: 201412

REACTIONS (1)
  - Hyponatraemia [Recovering/Resolving]

NARRATIVE: CASE EVENT DATE: 20150304
